FAERS Safety Report 4547488-3 (Version None)
Quarter: 2005Q1

REPORT INFORMATION
  Report Type: 
  Country: None (occurrence: None)
  Receive Date: 20041227
  Receipt Date: 20040924
  Transmission Date: 20050727
  Serious: No
  Sender: FDA-Public Use
  Company Number: 04P-163-0274660-00

PATIENT
  Age: 56 Year
  Sex: Female
  Weight: 90.7194 kg

DRUGS (14)
  1. HUMIRA [Suspect]
     Indication: RHEUMATOID ARTHRITIS
     Dosage: 40 MG, 1 IN 2 WK, SUBCUTANEOUS
     Route: 058
     Dates: start: 20040824
  2. FOSINOPRIL SODIUM [Concomitant]
  3. CLONIDINE [Concomitant]
  4. PREDNISONE [Concomitant]
  5. METHOTREXATE [Concomitant]
  6. SIMVASTATIN [Concomitant]
  7. ESTROGENS CONJUGATED [Concomitant]
  8. ESOMEPRAZOLE [Concomitant]
  9. HYDROCODONE [Concomitant]
  10. SERTRALINE HYDROCHLORIDE [Concomitant]
  11. LORAZEPAM [Concomitant]
  12. CALCIUM CARBONATE [Concomitant]
  13. GERITOL COMPLETE [Concomitant]
  14. POTASSIUM CHLORIDE [Concomitant]

REACTIONS (1)
  - RASH [None]
